FAERS Safety Report 17058593 (Version 1)
Quarter: 2019Q4

REPORT INFORMATION
  Report Type: Spontaneous
  Country: US (occurrence: US)
  Receive Date: 20191121
  Receipt Date: 20191121
  Transmission Date: 20200122
  Serious: Yes (Death, Other)
  Sender: FDA-Public Use
  Company Number: US-TEVA-2019-US-1138976

PATIENT
  Age: 58 Year
  Sex: Female

DRUGS (1)
  1. ALENDRONATE SODIUM TABLETS [Suspect]
     Active Substance: ALENDRONATE SODIUM
     Indication: CALCIUM DEFICIENCY
     Dosage: SHE WAS TAKING THE PRODUCT FOR ABOUT A YEAR AND A HALF STARTING IN 2016 OR 2017, DOSE STRENGTH:70
     Route: 065

REACTIONS (5)
  - Adverse event [Unknown]
  - Movement disorder [Unknown]
  - Hallucination [Unknown]
  - Pain [Unknown]
  - Coma [Unknown]

NARRATIVE: CASE EVENT DATE: 20180802
